FAERS Safety Report 4467025-1 (Version None)
Quarter: 2004Q4

REPORT INFORMATION
  Report Type: 
  Country: None (occurrence: None)
  Receive Date: 20041001
  Receipt Date: 20041001
  Transmission Date: 20050328
  Serious: Yes (Hospitalization, Other)
  Sender: FDA-Public Use
  Company Number: None

PATIENT
  Sex: Female
  Weight: 68.0396 kg

DRUGS (2)
  1. VIOXX [Suspect]
     Indication: PAIN
     Dosage: ONE PER DAY
     Dates: start: 20020625, end: 20040929
  2. VIOXX [Suspect]
     Indication: TRAUMATIC SPINAL CORD COMPRESSION
     Dosage: ONE PER DAY
     Dates: start: 20020625, end: 20040929

REACTIONS (3)
  - CHEST PAIN [None]
  - DYSPNOEA [None]
  - URINARY INCONTINENCE [None]
